FAERS Safety Report 25290668 (Version 4)
Quarter: 2025Q4

REPORT INFORMATION
  Report Type: Report from Study
  Country: US (occurrence: US)
  Receive Date: 20250510
  Receipt Date: 20251005
  Transmission Date: 20260117
  Serious: Yes (Other)
  Sender: NOVARTIS
  Company Number: US-002147023-NVSC2025US074604

PATIENT
  Sex: Male

DRUGS (1)
  1. KESIMPTA [Suspect]
     Active Substance: OFATUMUMAB
     Indication: Product used for unknown indication
     Dosage: UNK
     Route: 065

REACTIONS (7)
  - Paralysis [Not Recovered/Not Resolved]
  - Feeling abnormal [Unknown]
  - Therapeutic response shortened [Unknown]
  - Hyperventilation [Unknown]
  - Chills [Unknown]
  - Feeling cold [Unknown]
  - Fear [Unknown]
